FAERS Safety Report 6094417-X (Version None)
Quarter: 2009Q1

REPORT INFORMATION
  Report Type: 
  Country: None (occurrence: None)
  Receive Date: 20090226
  Receipt Date: 20080429
  Transmission Date: 20090719
  Serious: No
  Sender: FDA-Public Use
  Company Number: A0726114A

PATIENT
  Age: 82 Year
  Sex: Female

DRUGS (9)
  1. ALKERAN [Suspect]
     Indication: MULTIPLE MYELOMA
     Route: 065
  2. THALIDOMIDE [Suspect]
     Indication: MULTIPLE MYELOMA
     Dosage: 200MG UNKNOWN
     Route: 048
     Dates: start: 20071112, end: 20080331
  3. PREDNISONE [Concomitant]
  4. ZOMETA [Concomitant]
  5. TOPROL-XL [Concomitant]
  6. PERCOCET [Concomitant]
  7. COUMADIN [Concomitant]
  8. ZOCOR [Concomitant]
  9. UNSPECIFIED MEDICATION [Concomitant]

REACTIONS (1)
  - FATIGUE [None]
